FAERS Safety Report 25139332 (Version 2)
Quarter: 2025Q2

REPORT INFORMATION
  Report Type: Spontaneous
  Country: TR (occurrence: TR)
  Receive Date: 20250331
  Receipt Date: 20250401
  Transmission Date: 20250717
  Serious: Yes (Hospitalization, Other)
  Sender: RISING PHARMACEUTICALS
  Company Number: TR-RISINGPHARMA-TR-2025RISLIT00148

PATIENT
  Age: 2 Year
  Sex: Male

DRUGS (4)
  1. TRANEXAMIC ACID [Suspect]
     Active Substance: TRANEXAMIC ACID
     Indication: Pulmonary haemorrhage
  2. LEVETIRACETAM [Concomitant]
     Active Substance: LEVETIRACETAM
     Indication: Epilepsy
     Route: 065
  3. PHENOBARBITAL [Concomitant]
     Active Substance: PHENOBARBITAL
     Indication: Epilepsy
     Route: 065
  4. CEFEPIME [Concomitant]
     Active Substance: CEFEPIME HYDROCHLORIDE
     Indication: Antibiotic therapy
     Route: 065

REACTIONS (7)
  - Anaphylactic reaction [Recovered/Resolved]
  - Rash maculo-papular [Recovered/Resolved]
  - Cyanosis [Recovered/Resolved]
  - Wheezing [Recovered/Resolved]
  - Hypotension [Recovered/Resolved]
  - Oxygen saturation decreased [Recovered/Resolved]
  - Tachycardia [Recovered/Resolved]
